FAERS Safety Report 24853321 (Version 3)
Quarter: 2025Q1

REPORT INFORMATION
  Report Type: Report from Study
  Country: US (occurrence: US)
  Receive Date: 20250117
  Receipt Date: 20250312
  Transmission Date: 20250409
  Serious: Yes (Other)
  Sender: SANDOZ
  Company Number: US-SANDOZ-SDZ2025US002531

PATIENT
  Age: 8 Year
  Sex: Male

DRUGS (6)
  1. OMNITROPE [Suspect]
     Active Substance: SOMATROPIN
     Indication: Short stature
     Dosage: 0.12 ML, QD (STRENGTH: 5MG/ML)
     Route: 058
     Dates: start: 20250114
  2. OMNITROPE [Suspect]
     Active Substance: SOMATROPIN
     Indication: Short stature
     Dosage: 0.12 ML, QD (STRENGTH: 5MG/ML)
     Route: 058
     Dates: start: 20250114
  3. OMNITROPE [Suspect]
     Active Substance: SOMATROPIN
     Dosage: 0.12 IU, QD; (STRENGTH: 5MG/ML)
     Route: 058
  4. OMNITROPE [Suspect]
     Active Substance: SOMATROPIN
     Dosage: 0.12 IU, QD; (STRENGTH: 5MG/ML)
     Route: 058
  5. OMNITROPE [Suspect]
     Active Substance: SOMATROPIN
     Route: 058
  6. OMNITROPE [Suspect]
     Active Substance: SOMATROPIN
     Route: 058

REACTIONS (6)
  - Croup infectious [Unknown]
  - Tic [Unknown]
  - Respiratory syncytial virus infection [Unknown]
  - Attention deficit hyperactivity disorder [Unknown]
  - Needle issue [Unknown]
  - Product storage error [Not Recovered/Not Resolved]

NARRATIVE: CASE EVENT DATE: 20250114
